FAERS Safety Report 5922455-3 (Version None)
Quarter: 2008Q4

REPORT INFORMATION
  Report Type: 
  Country: None (occurrence: None)
  Receive Date: 20081017
  Receipt Date: 20081016
  Transmission Date: 20090506
  Serious: Yes (Other)
  Sender: FDA-Public Use
  Company Number: US-RB-004020-08

PATIENT
  Age: 49 Year
  Sex: Female

DRUGS (4)
  1. SUBUTEX [Suspect]
     Dosage: VARIABLE DOSING.
     Route: 060
     Dates: start: 20080912
  2. SUBOXONE [Suspect]
     Dosage: VARIABLE DOSING.
     Route: 060
     Dates: start: 20080829, end: 20080911
  3. RESTORIL [Concomitant]
     Indication: INSOMNIA
     Dosage: UNKNOWN DOSING INFORMATION.
     Route: 048
  4. XANAX [Concomitant]
     Indication: ANXIETY
     Dosage: 0.5 MG TAKEN AS NEEDED
     Route: 048

REACTIONS (3)
  - HALLUCINATION [None]
  - PALPITATIONS [None]
  - WITHDRAWAL SYNDROME [None]
